FAERS Safety Report 5065311-8 (Version None)
Quarter: 2006Q3

REPORT INFORMATION
  Report Type: 
  Country: None (occurrence: None)
  Receive Date: 20060731
  Receipt Date: 20060717
  Transmission Date: 20061208
  Serious: Yes (Hospitalization, Other)
  Sender: FDA-Public Use
  Company Number: US-AMGEN-STX186676

PATIENT
  Sex: Female

DRUGS (1)
  1. ENBREL [Suspect]
     Indication: RHEUMATOID ARTHRITIS
     Route: 058
     Dates: start: 20040101

REACTIONS (5)
  - ABDOMINOPLASTY [None]
  - CYSTITIS [None]
  - HAEMORRHAGIC OVARIAN CYST [None]
  - SINUSITIS [None]
  - STAPHYLOCOCCAL INFECTION [None]
